FAERS Safety Report 9601170 (Version 2)
Quarter: 2013Q4

REPORT INFORMATION
  Report Type: Spontaneous
  Country: GB (occurrence: GB)
  Receive Date: 20131004
  Receipt Date: 20131018
  Transmission Date: 20140711
  Serious: Yes (Other)
  Sender: FDA-Public Use
  Company Number: GB-JNJFOC-20130913867

PATIENT
  Age: 42 Year
  Sex: Female
  Weight: 57.15 kg

DRUGS (3)
  1. PARACETAMOL [Suspect]
     Route: 048
  2. PARACETAMOL [Suspect]
     Indication: HEADACHE
     Route: 048
     Dates: start: 20130910, end: 20130912
  3. SALBUTAMOL [Concomitant]
     Indication: ASTHMA
     Route: 065

REACTIONS (3)
  - Anaphylactic reaction [Recovering/Resolving]
  - Reaction to drug excipients [Unknown]
  - Drug ineffective [Unknown]
